FAERS Safety Report 9118320 (Version 1)
Quarter: 2013Q1

REPORT INFORMATION
  Report Type: Spontaneous
  Country: US (occurrence: None)
  Receive Date: 20130221
  Receipt Date: 20130221
  Transmission Date: 20140127
  Serious: Yes (Disabling, Other)
  Sender: FDA-Public Use
  Company Number: None

PATIENT
  Age: 17 Year
  Sex: Male
  Weight: 81.65 kg

DRUGS (1)
  1. ACCUTANE [Suspect]

REACTIONS (12)
  - Alopecia [None]
  - Diffuse alopecia [None]
  - Raynaud^s phenomenon [None]
  - Dry skin [None]
  - Rosacea [None]
  - Impaired healing [None]
  - Tendonitis [None]
  - Skin fragility [None]
  - Skin wrinkling [None]
  - Skin atrophy [None]
  - Superficial vein prominence [None]
  - Sebaceous gland disorder [None]
